FAERS Safety Report 22151512 (Version 1)
Quarter: 2023Q1

REPORT INFORMATION
  Report Type: Spontaneous
  Country: US (occurrence: US)
  Receive Date: 20230329
  Receipt Date: 20230329
  Transmission Date: 20230418
  Serious: Yes (Hospitalization, Other)
  Sender: FDA-Public Use
  Company Number: US-SA-SAC20230328001271

PATIENT
  Age: 16 Year
  Sex: Male
  Weight: 78.2 kg

DRUGS (1)
  1. DUPIXENT [Suspect]
     Active Substance: DUPILUMAB
     Indication: Dermatitis atopic
     Dosage: 300 MG, QOW
     Route: 058
     Dates: start: 202303

REACTIONS (8)
  - Enterovirus infection [Unknown]
  - Nasopharyngitis [Unknown]
  - Cough [Unknown]
  - Pyrexia [Unknown]
  - Myalgia [Unknown]
  - Erythema [Unknown]
  - Rash [Unknown]
  - Arthralgia [Unknown]

NARRATIVE: CASE EVENT DATE: 20230301
